FAERS Safety Report 17127655 (Version 3)
Quarter: 2020Q4

REPORT INFORMATION
  Report Type: Spontaneous
  Country: US (occurrence: US)
  Receive Date: 20191209
  Receipt Date: 20201005
  Transmission Date: 20210113
  Serious: No
  Sender: FDA-Public Use
  Company Number: US-GILEAD-2019-0440959

PATIENT
  Age: 66 Year
  Sex: Female

DRUGS (2)
  1. ATRIPLA [Suspect]
     Active Substance: EFAVIRENZ\EMTRICITABINE\TENOFOVIR DISOPROXIL FUMARATE
     Indication: HIV INFECTION
     Dosage: UNK
     Route: 048
     Dates: start: 201110, end: 20190718
  2. ATRIPLA [Suspect]
     Active Substance: EFAVIRENZ\EMTRICITABINE\TENOFOVIR DISOPROXIL FUMARATE
     Dosage: UNK
     Route: 048
     Dates: start: 201110, end: 201709

REACTIONS (7)
  - Anhedonia [Unknown]
  - Anxiety [Unknown]
  - Emotional distress [Unknown]
  - Bone loss [Not Recovered/Not Resolved]
  - Economic problem [Unknown]
  - Bone density decreased [Unknown]
  - Pain [Unknown]

NARRATIVE: CASE EVENT DATE: 201509
